FAERS Safety Report 18693121 (Version 1)
Quarter: 2021Q1

REPORT INFORMATION
  Report Type: Spontaneous
  Country: NL (occurrence: NL)
  Receive Date: 20210104
  Receipt Date: 20210104
  Transmission Date: 20210419
  Serious: Yes (Other)
  Sender: FDA-Public Use
  Company Number: NL-AUROBINDO-AUR-APL-2020-064116

PATIENT
  Age: 22 Year
  Sex: Female
  Weight: 58 kg

DRUGS (2)
  1. MIRTAZAPINE FILM?COATED TABLETS 15MG [Suspect]
     Active Substance: MIRTAZAPINE
     Indication: BORDERLINE PERSONALITY DISORDER
     Dosage: 15 MILLIGRAM
     Route: 065
     Dates: start: 20201218, end: 20201220
  2. MIRTAZAPINE FILM?COATED TABLETS 15MG [Suspect]
     Active Substance: MIRTAZAPINE
     Indication: DEPRESSION

REACTIONS (1)
  - Generalised tonic-clonic seizure [Recovered/Resolved]

NARRATIVE: CASE EVENT DATE: 20201221
